FAERS Safety Report 9382535 (Version 1)
Quarter: 2013Q3

REPORT INFORMATION
  Report Type: Spontaneous
  Country: US (occurrence: US)
  Receive Date: 20130703
  Receipt Date: 20130703
  Transmission Date: 20140515
  Serious: Yes (Other)
  Sender: FDA-Public Use
  Company Number: US-UCBSA-090252

PATIENT
  Sex: 0

DRUGS (4)
  1. KEPPRA [Suspect]
     Dosage: UNKNOWN DOSE
  2. KEPPRA [Suspect]
     Dosage: DOSE DECREASED
  3. LAMICTAL [Suspect]
     Dosage: UNKNOWN DOSE
  4. LAMICTAL [Suspect]
     Dosage: DOSE INCREASED

REACTIONS (1)
  - Convulsion [Unknown]
